FAERS Safety Report 18838168 (Version 1)
Quarter: 2021Q1

REPORT INFORMATION
  Report Type: Spontaneous
  Country: US (occurrence: US)
  Receive Date: 20210203
  Receipt Date: 20210203
  Transmission Date: 20210419
  Serious: No
  Sender: FDA-Public Use
  Company Number: US-ALLERGAN-2048289US

PATIENT
  Sex: Female

DRUGS (4)
  1. BOTOX COSMETIC [Suspect]
     Active Substance: ONABOTULINUMTOXINA
     Indication: SKIN WRINKLING
     Dosage: 12 UNITS, SINGLE
     Route: 030
     Dates: start: 20200603, end: 20200603
  2. BOTOX COSMETIC [Suspect]
     Active Substance: ONABOTULINUMTOXINA
     Indication: SKIN WRINKLING
     Dosage: 7 UNITS, SINGLE
     Route: 030
     Dates: start: 20200603, end: 20200603
  3. BOTOX COSMETIC [Suspect]
     Active Substance: ONABOTULINUMTOXINA
     Indication: SKIN WRINKLING
     Dosage: 18 UNITS, SINGLE
     Route: 030
     Dates: start: 20200603, end: 20200603
  4. BOTOX COSMETIC [Suspect]
     Active Substance: ONABOTULINUMTOXINA
     Indication: SKIN WRINKLING
     Dosage: 12 UNITS, SINGLE
     Route: 030
     Dates: start: 20200603, end: 20200603

REACTIONS (1)
  - Therapeutic response decreased [Unknown]
